FAERS Safety Report 5276411-1 (Version None)
Quarter: 2007Q1

REPORT INFORMATION
  Report Type: 
  Country: None (occurrence: None)
  Receive Date: 20061213
  Receipt Date: 20030925
  Transmission Date: 20070707
  Serious: No
  Sender: FDA-Public Use
  Company Number: 2003UW12379

PATIENT
  Age: 42 Year
  Sex: Female

DRUGS (3)
  1. SEROQUEL [Suspect]
  2. DILANTIN [Concomitant]
  3. PHENOBARBITAL TAB [Concomitant]

REACTIONS (1)
  - CONVULSIVE THRESHOLD LOWERED [None]
